FAERS Safety Report 6007984-9 (Version None)
Quarter: 2008Q4

REPORT INFORMATION
  Report Type: 
  Country: None (occurrence: None)
  Receive Date: 20081217
  Receipt Date: 20080623
  Transmission Date: 20090506
  Serious: No
  Sender: FDA-Public Use
  Company Number: US-ASTRAZENECA-2008UW12637

PATIENT
  Age: 61 Year
  Sex: Male

DRUGS (6)
  1. CRESTOR [Suspect]
     Route: 048
     Dates: start: 20080601
  2. LISINOPRIL [Concomitant]
  3. MULTI-VITAMIN [Concomitant]
  4. ASPIRIN [Concomitant]
  5. MAGNESIUM SULFATE [Concomitant]
  6. CALCIUM [Concomitant]

REACTIONS (2)
  - INSOMNIA [None]
  - POLYURIA [None]
